FAERS Safety Report 8946982 (Version 1)
Quarter: 2012Q4

REPORT INFORMATION
  Report Type: 
  Country: US (occurrence: US)
  Receive Date: 20121205
  Receipt Date: 20121205
  Transmission Date: 20130627
  Serious: No
  Sender: FDA-Public Use
  Company Number: US-009507513-1212USA001381

PATIENT
  Sex: Female

DRUGS (2)
  1. IMPLANON [Suspect]
     Indication: CONTRACEPTION
     Dosage: 68 mg/3 year implant
     Route: 059
  2. IMPLANON [Suspect]
     Dosage: UNK 2nd implant
     Route: 059

REACTIONS (2)
  - Implant site haemorrhage [Unknown]
  - Device expulsion [Unknown]
